FAERS Safety Report 9408052 (Version 1)
Quarter: 2013Q3

REPORT INFORMATION
  Report Type: Spontaneous
  Country: MX (occurrence: MX)
  Receive Date: 20130718
  Receipt Date: 20130718
  Transmission Date: 20140515
  Serious: Yes (Death)
  Sender: FDA-Public Use
  Company Number: MX-BRISTOL-MYERS SQUIBB COMPANY-19105618

PATIENT
  Age: 38 Year
  Sex: Male

DRUGS (2)
  1. REYATAZ CAPS [Suspect]
     Dates: start: 20110824
  2. TRUVADA [Suspect]

REACTIONS (1)
  - Myocardial infarction [Fatal]
